FAERS Safety Report 11254552 (Version 1)
Quarter: 2015Q3

REPORT INFORMATION
  Report Type: Spontaneous
  Country: US (occurrence: US)
  Receive Date: 20150709
  Receipt Date: 20150709
  Transmission Date: 20151125
  Serious: Yes (Other)
  Sender: FDA-Public Use
  Company Number: US-ELI_LILLY_AND_COMPANY-US201506010550

PATIENT
  Sex: Male

DRUGS (13)
  1. ASPIRIN                            /00002701/ [Concomitant]
     Active Substance: ASPIRIN
     Dosage: 81 MG, UNK
  2. LIPITOR [Concomitant]
     Active Substance: ATORVASTATIN CALCIUM
  3. BUSPAR [Concomitant]
     Active Substance: BUSPIRONE HYDROCHLORIDE
  4. VICODIN ES [Concomitant]
     Active Substance: ACETAMINOPHEN\HYDROCODONE BITARTRATE
  5. PRILOSEC [Concomitant]
     Active Substance: OMEPRAZOLE MAGNESIUM
  6. AMBIEN [Concomitant]
     Active Substance: ZOLPIDEM TARTRATE
  7. VITAMIN C [Concomitant]
     Active Substance: ASCORBIC ACID
  8. CIALIS [Suspect]
     Active Substance: TADALAFIL
     Dosage: 20 MG, PRN
     Route: 048
  9. CIALIS [Suspect]
     Active Substance: TADALAFIL
     Indication: ERECTILE DYSFUNCTION
     Dosage: 2.5 MG, QD
     Route: 065
     Dates: start: 2003
  10. TRICOR                             /00499301/ [Concomitant]
  11. EFFEXOR [Concomitant]
     Active Substance: VENLAFAXINE HYDROCHLORIDE
  12. KLONOPIN [Concomitant]
     Active Substance: CLONAZEPAM
  13. PLETAL [Concomitant]
     Active Substance: CILOSTAZOL

REACTIONS (5)
  - Renal failure [Not Recovered/Not Resolved]
  - Muscle spasms [Unknown]
  - Dizziness [Recovered/Resolved]
  - Blood potassium increased [Unknown]
  - Bladder cancer [Not Recovered/Not Resolved]

NARRATIVE: CASE EVENT DATE: 2006
